FAERS Safety Report 19956059 (Version 1)
Quarter: 2021Q4

REPORT INFORMATION
  Report Type: Report from Study
  Country: US (occurrence: US)
  Receive Date: 20211014
  Receipt Date: 20211014
  Transmission Date: 20220303
  Serious: Yes (Hospitalization)
  Sender: FDA-Public Use
  Company Number: US-PFIZER INC-202101311109

PATIENT
  Sex: Male
  Weight: 133.7 kg

DRUGS (24)
  1. SILDENAFIL CITRATE [Suspect]
     Active Substance: SILDENAFIL CITRATE
     Dosage: UNK
     Dates: start: 2017
  2. LIPITOR [Suspect]
     Active Substance: ATORVASTATIN CALCIUM
     Dosage: UNK
  3. SPIRONOLACTONE [Suspect]
     Active Substance: SPIRONOLACTONE
     Dosage: UNK
  4. AMBRISENTAN [Suspect]
     Active Substance: AMBRISENTAN
     Indication: Pulmonary arterial hypertension
     Dosage: 10 MG, 1X/DAY
  5. FUROSEMIDE [Suspect]
     Active Substance: FUROSEMIDE
     Dosage: UNK
  6. SERTRALINE HYDROCHLORIDE [Suspect]
     Active Substance: SERTRALINE HYDROCHLORIDE
     Dosage: UNK
  7. TYLENOL [Suspect]
     Active Substance: ACETAMINOPHEN
     Dosage: UNK
  8. METOPROLOL SUCCINATE [Suspect]
     Active Substance: METOPROLOL SUCCINATE
     Dosage: UNK
  9. FARXIGA [Suspect]
     Active Substance: DAPAGLIFLOZIN PROPANEDIOL
     Dosage: UNK
  10. SUCRALFATE [Suspect]
     Active Substance: SUCRALFATE
     Dosage: UNK
  11. VENTOLIN HFA [Suspect]
     Active Substance: ALBUTEROL SULFATE
     Dosage: UNK
  12. CITALOPRAM HYDROBROMIDE [Suspect]
     Active Substance: CITALOPRAM HYDROBROMIDE
     Dosage: UNK
  13. BUSPIRONE HYDROCHLORIDE [Suspect]
     Active Substance: BUSPIRONE HYDROCHLORIDE
     Dosage: UNK
  14. BASAGLAR KWIKPEN [Suspect]
     Active Substance: INSULIN GLARGINE
     Dosage: UNK
  15. HYDROXYZINE HYDROCHLORIDE [Suspect]
     Active Substance: HYDROXYZINE HYDROCHLORIDE
     Dosage: UNK
  16. PANTOPRAZOLE SODIUM [Suspect]
     Active Substance: PANTOPRAZOLE SODIUM
     Dosage: UNK
  17. FOLIC ACID [Suspect]
     Active Substance: FOLIC ACID
     Dosage: UNK
  18. PEPCID AC [Suspect]
     Active Substance: FAMOTIDINE
     Dosage: UNK
  19. VITAMIN D NOS [Suspect]
     Active Substance: VITAMIN D NOS
     Dosage: UNK
  20. BUMEX [Concomitant]
     Active Substance: BUMETANIDE
     Dosage: UNK
  21. ATIVAN [Concomitant]
     Active Substance: LORAZEPAM
     Dosage: UNK
  22. MECLIZINE [Concomitant]
     Active Substance: MECLIZINE HYDROCHLORIDE
     Dosage: UNK
  23. LISINOPRIL [Concomitant]
     Active Substance: LISINOPRIL
     Dosage: UNK
  24. NOVOLOG [Concomitant]
     Active Substance: INSULIN ASPART
     Dosage: UNK

REACTIONS (11)
  - Dizziness [Not Recovered/Not Resolved]
  - Palpitations [Not Recovered/Not Resolved]
  - Headache [Not Recovered/Not Resolved]
  - Gastrooesophageal reflux disease [Not Recovered/Not Resolved]
  - Dyspepsia [Not Recovered/Not Resolved]
  - Dyspnoea [Unknown]
  - Fatigue [Recovering/Resolving]
  - Vitamin D decreased [Not Recovered/Not Resolved]
  - Blood pressure fluctuation [Unknown]
  - Ear disorder [Not Recovered/Not Resolved]
  - Product dose omission issue [Unknown]
